FAERS Safety Report 11203075 (Version 1)
Quarter: 2015Q2

REPORT INFORMATION
  Report Type: Spontaneous
  Country: BR (occurrence: BR)
  Receive Date: 20150619
  Receipt Date: 20150619
  Transmission Date: 20150821
  Serious: Yes (Other)
  Sender: FDA-Public Use
  Company Number: BR-AMGEN-BRASP2015058018

PATIENT
  Age: 67 Year
  Sex: Female

DRUGS (1)
  1. NPLATE [Suspect]
     Active Substance: ROMIPLOSTIM
     Indication: METAPHYSEAL DYSPLASIA
     Dosage: UNK, UNK
     Route: 065
     Dates: start: 201504

REACTIONS (2)
  - Off label use [Unknown]
  - Acute leukaemia [Unknown]

NARRATIVE: CASE EVENT DATE: 201504
